FAERS Safety Report 8852442 (Version 2)
Quarter: 2012Q4

REPORT INFORMATION
  Report Type: 
  Country: JP (occurrence: JP)
  Receive Date: 20121022
  Receipt Date: 20121029
  Transmission Date: 20130627
  Serious: Yes (Other)
  Sender: FDA-Public Use
  Company Number: JP-PFIZER INC-2012261301

PATIENT
  Age: 79 Year
  Sex: Male

DRUGS (2)
  1. LYRICA [Suspect]
     Indication: LOW BACK PAIN
     Dosage: 100 mg, daily
     Route: 048
     Dates: start: 20120823
  2. LYRICA [Suspect]
     Indication: NUMBNESS

REACTIONS (4)
  - Renal impairment [Unknown]
  - Blood potassium increased [Unknown]
  - Asthenia [Unknown]
  - Gait disturbance [Unknown]
